APPROVED DRUG PRODUCT: DAWNZERA (AUTOINJECTOR)
Active Ingredient: DONIDALORSEN SODIUM
Strength: EQ 80MG BASE/0.8ML (EQ 80MG BASE/0.8ML)
Dosage Form/Route: SOLUTION;SUBCUTANEOUS
Application: N219407 | Product #001
Applicant: IONIS PHARMACEUTICALS INC
Approved: Aug 21, 2025 | RLD: Yes | RS: Yes | Type: RX

PATENTS:
Patent 10294477 | Expires: May 1, 2035
Patent 9315811 | Expires: Oct 21, 2032
Patent 9670492 | Expires: Aug 28, 2034
Patent 9127276 | Expires: May 1, 2034
Patent 9181549 | Expires: May 1, 2034